FAERS Safety Report 8999440 (Version 1)
Quarter: 2013Q1

REPORT INFORMATION
  Report Type: Spontaneous
  Country: US (occurrence: US)
  Receive Date: 20130103
  Receipt Date: 20130103
  Transmission Date: 20140127
  Serious: No
  Sender: FDA-Public Use
  Company Number: US-B.I. PHARMACEUTICALS,INC./RIDGEFIELD-2012-BI-03248BP

PATIENT
  Age: 75 None
  Sex: Male
  Weight: 75 kg

DRUGS (2)
  1. ATROVENT [Suspect]
     Indication: EMPHYSEMA
     Dosage: 136 MCG
     Route: 055
     Dates: start: 2009
  2. COMBIVENT [Suspect]
     Indication: EMPHYSEMA
     Dosage: 8 PUF
     Route: 055
     Dates: start: 2009, end: 2009

REACTIONS (3)
  - Dyspnoea [Not Recovered/Not Resolved]
  - Blood pressure increased [Recovered/Resolved]
  - Drug effect decreased [Not Recovered/Not Resolved]
